FAERS Safety Report 14357015 (Version 6)
Quarter: 2019Q1

REPORT INFORMATION
  Report Type: Report from Study
  Country: US (occurrence: US)
  Receive Date: 20180105
  Receipt Date: 20190225
  Transmission Date: 20190417
  Serious: Yes (Death, Hospitalization, Other)
  Sender: FDA-Public Use
  Company Number: US-ARIAD-2016US007312

PATIENT
  Age: 62 Year
  Sex: Female

DRUGS (7)
  1. PONATINIB [Suspect]
     Active Substance: PONATINIB
     Indication: ACUTE LEUKAEMIA
     Dosage: 30 MG, QD
     Route: 048
     Dates: start: 20161022
  2. PONATINIB [Suspect]
     Active Substance: PONATINIB
     Dosage: 30 MG, QD
     Route: 048
  3. PONATINIB [Suspect]
     Active Substance: PONATINIB
     Dosage: 30 MG, QD
     Route: 048
  4. PONATINIB [Suspect]
     Active Substance: PONATINIB
     Dosage: 30 MG, QD
     Route: 048
  5. PONATINIB [Suspect]
     Active Substance: PONATINIB
     Dosage: 30 MG, QD
     Route: 048
  6. PONATINIB [Suspect]
     Active Substance: PONATINIB
     Dosage: 45 MG, QD
     Route: 048
  7. PONATINIB [Suspect]
     Active Substance: PONATINIB
     Dosage: 30 MG, QD
     Route: 048
     Dates: start: 201610

REACTIONS (17)
  - Bacteraemia [Unknown]
  - Vertebral foraminal stenosis [Unknown]
  - Respiratory syncytial virus infection [Unknown]
  - Acute lymphocytic leukaemia recurrent [Unknown]
  - Hypertension [Not Recovered/Not Resolved]
  - Nausea [Not Recovered/Not Resolved]
  - Dizziness [Unknown]
  - Vomiting [Unknown]
  - Cough [Unknown]
  - Death [Fatal]
  - Fatigue [Unknown]
  - Spinal cord compression [Unknown]
  - Ocular hyperaemia [Unknown]
  - Headache [Unknown]
  - Rhinorrhoea [Unknown]
  - Urine abnormality [Unknown]
  - Dysphonia [Unknown]

NARRATIVE: CASE EVENT DATE: 201712
